FAERS Safety Report 7534574-9 (Version None)
Quarter: 2011Q2

REPORT INFORMATION
  Report Type: 
  Country: None (occurrence: None)
  Receive Date: 20110609
  Receipt Date: 20090622
  Transmission Date: 20111010
  Serious: Yes (Death, Hospitalization)
  Sender: FDA-Public Use
  Company Number: PHHY2009DE16388

PATIENT
  Sex: Male

DRUGS (2)
  1. ZOMETA [Suspect]
     Indication: METASTASES TO BONE
     Dosage: 4 MG, QMO
     Route: 042
     Dates: start: 20080407, end: 20090112
  2. CASODEX [Concomitant]
     Dosage: UNK
     Dates: start: 20080301, end: 20080401

REACTIONS (2)
  - THROMBOSIS [None]
  - DEATH [None]
